FAERS Safety Report 23518937 (Version 3)
Quarter: 2024Q2

REPORT INFORMATION
  Report Type: Spontaneous
  Country: JP (occurrence: JP)
  Receive Date: 20240213
  Receipt Date: 20240412
  Transmission Date: 20240716
  Serious: Yes (Death, Hospitalization, Disabling, Other)
  Sender: FDA-Public Use
  Company Number: JP-MSD-M2024-02618

PATIENT
  Age: 73 Year
  Sex: Female
  Weight: 63 kg

DRUGS (12)
  1. KEYTRUDA [Suspect]
     Active Substance: PEMBROLIZUMAB
     Indication: Gastric cancer
     Dosage: 200 MILLIGRAM, Q3W
     Route: 041
     Dates: start: 20230125, end: 20231122
  2. KEYTRUDA [Suspect]
     Active Substance: PEMBROLIZUMAB
     Indication: Microsatellite instability cancer
  3. ADALAT [Concomitant]
     Active Substance: NIFEDIPINE
     Dosage: 1TABLET, QD
     Route: 048
     Dates: end: 20240123
  4. BISOPROLOL FUMARATE [Concomitant]
     Active Substance: BISOPROLOL FUMARATE
     Dosage: 1TABLET, QD
     Route: 048
     Dates: end: 20240123
  5. ROSUVASTATIN CALCIUM [Concomitant]
     Active Substance: ROSUVASTATIN CALCIUM
     Dosage: 1TABLET, QD
     Route: 048
     Dates: end: 20240123
  6. HERBESSER [Concomitant]
     Active Substance: DILTIAZEM HYDROCHLORIDE
     Dosage: 1CAP, QD
     Route: 048
     Dates: end: 20240123
  7. PEMAFIBRATE [Concomitant]
     Active Substance: PEMAFIBRATE
     Dosage: 1TABLET, BID
     Route: 048
     Dates: end: 20240123
  8. MAGNESIUM OXIDE [Concomitant]
     Active Substance: MAGNESIUM OXIDE
     Dosage: 2TABLET, TID
     Route: 048
     Dates: start: 20201014, end: 20240123
  9. DESLORATADINE [Concomitant]
     Active Substance: DESLORATADINE
     Dosage: 1TABLET, QD
     Route: 048
     Dates: start: 20230308, end: 20240123
  10. NEXIUM [Concomitant]
     Active Substance: ESOMEPRAZOLE MAGNESIUM
     Dosage: 1CAP, QD
     Route: 048
     Dates: start: 20201014, end: 20240123
  11. CALONAL [Concomitant]
     Active Substance: ACETAMINOPHEN
     Dosage: 2TABLET, TID
     Route: 048
     Dates: start: 20201014, end: 20240123
  12. SODIUM FERROUS CITRATE [Concomitant]
     Active Substance: SODIUM FERROUS CITRATE
     Dosage: 1TABLET, BID
     Route: 048
     Dates: start: 20230308, end: 20240123

REACTIONS (8)
  - Death [Fatal]
  - Osteoarthritis [Recovering/Resolving]
  - Gait disturbance [Recovering/Resolving]
  - Delirium [Not Recovered/Not Resolved]
  - Hallucination [Not Recovered/Not Resolved]
  - Muscular weakness [Recovering/Resolving]
  - Decreased appetite [Recovering/Resolving]
  - Vertigo positional [Unknown]

NARRATIVE: CASE EVENT DATE: 20231206
